FAERS Safety Report 4611800-7 (Version None)
Quarter: 2005Q1

REPORT INFORMATION
  Report Type: 
  Country: None (occurrence: None)
  Receive Date: 20050317
  Receipt Date: 20050309
  Transmission Date: 20050727
  Serious: Yes (Life-Threatening)
  Sender: FDA-Public Use
  Company Number: CA-ABBOTT-05P-028-0293859-00

PATIENT
  Sex: Female
  Weight: 45.4 kg

DRUGS (1)
  1. BIAXIN [Suspect]
     Indication: DRUG USE FOR UNKNOWN INDICATION
     Dates: start: 20030701

REACTIONS (1)
  - HEART RATE INCREASED [None]
